FAERS Safety Report 18512570 (Version 1)
Quarter: 2020Q4

REPORT INFORMATION
  Report Type: Spontaneous
  Country: NO (occurrence: NO)
  Receive Date: 20201117
  Receipt Date: 20201117
  Transmission Date: 20210114
  Serious: Yes (Hospitalization)
  Sender: FDA-Public Use
  Company Number: NO-TEVA-2020-NO-1848454

PATIENT
  Age: 40 Year
  Sex: Female

DRUGS (1)
  1. METHOTREXATE. [Suspect]
     Active Substance: METHOTREXATE
     Indication: PSORIATIC ARTHROPATHY
     Dosage: PRESCRIBED DOSE: 15 MG PER WEEK?THE PATIENT TOOK BY MISTAKE 15 MG PER DAY FOR 1 WEEK, UNIT DOSE 15MG
     Route: 048
     Dates: start: 20201005, end: 20201011

REACTIONS (3)
  - Medication error [Recovering/Resolving]
  - Stomatitis [Recovering/Resolving]
  - Incorrect dose administered [Recovering/Resolving]

NARRATIVE: CASE EVENT DATE: 20201011
